FAERS Safety Report 19722921 (Version 2)
Quarter: 2022Q1

REPORT INFORMATION
  Report Type: Spontaneous
  Country: GB (occurrence: GB)
  Receive Date: 20210820
  Receipt Date: 20220308
  Transmission Date: 20220423
  Serious: Yes (Other)
  Sender: FDA-Public Use
  Company Number: GB-JNJFOC-20171218587

PATIENT
  Age: 73 Year
  Sex: Female
  Weight: 50.2 kg

DRUGS (22)
  1. VELCADE [Suspect]
     Active Substance: BORTEZOMIB
     Indication: Plasma cell leukaemia
     Dosage: ON DAYS 1, 4, 8, 11, 22, 25, 29, 32, DAY 1 OF CYCLE 2; DOSE: 2 MG, COMPOUNDED WITH SODIUM CHLORIDE
     Route: 058
     Dates: start: 20171103, end: 20171103
  2. VELCADE [Suspect]
     Active Substance: BORTEZOMIB
     Dosage: DAY 4 OF CYCLE 2, DOSE AS 2 MG, COMPOUNDED WITH SODIUM CHLORIDE, ON DAYS 1, 4, 8, 11, 22, 25, 29, 32
     Route: 058
     Dates: start: 20171106, end: 20171106
  3. VELCADE [Suspect]
     Active Substance: BORTEZOMIB
     Dosage: DAY 8 OF CYCLE 2, DOSE: 2 MG, COMPOUNDED WITH SODIUM CHLORIDE, ON DAYS 1, 4, 8, 11, 22, 25, 29, 32
     Route: 058
     Dates: start: 20171110, end: 20171110
  4. VELCADE [Suspect]
     Active Substance: BORTEZOMIB
     Dosage: CYCLE 1, ON DAYS 1, 4, 8, 11, 22, 25, 29 AND 32
     Route: 058
  5. FENTANYL [Suspect]
     Active Substance: FENTANYL
     Indication: Product used for unknown indication
     Dosage: 12 MCG
     Route: 062
     Dates: start: 20171108
  6. PREDNISONE [Suspect]
     Active Substance: PREDNISONE
     Indication: Plasma cell leukaemia
     Route: 065
     Dates: start: 20171103, end: 20171106
  7. PREDNISONE [Suspect]
     Active Substance: PREDNISONE
     Route: 065
  8. MELPHALAN [Suspect]
     Active Substance: MELPHALAN
     Indication: Plasma cell leukaemia
     Dosage: VMP REGIMEN, DAY 1 TO 4, CYCLE 2
     Route: 065
     Dates: start: 20171103, end: 20171106
  9. MELPHALAN [Suspect]
     Active Substance: MELPHALAN
     Route: 065
  10. MELPHALAN [Suspect]
     Active Substance: MELPHALAN
     Route: 065
     Dates: start: 20171107, end: 20171110
  11. SODIUM CHLORIDE [Suspect]
     Active Substance: SODIUM CHLORIDE
     Indication: Medication dilution
     Route: 065
     Dates: start: 20171103, end: 20171103
  12. SODIUM CHLORIDE [Suspect]
     Active Substance: SODIUM CHLORIDE
     Route: 065
     Dates: start: 20171106, end: 20171106
  13. SODIUM CHLORIDE [Suspect]
     Active Substance: SODIUM CHLORIDE
     Route: 065
     Dates: start: 20171110, end: 20171110
  14. ALLOPURINOL [Suspect]
     Active Substance: ALLOPURINOL
     Indication: Product used for unknown indication
     Route: 065
     Dates: start: 20171104
  15. ALLOPURINOL [Suspect]
     Active Substance: ALLOPURINOL
     Route: 065
     Dates: start: 20171120
  16. ALLOPURINOL [Suspect]
     Active Substance: ALLOPURINOL
     Route: 065
     Dates: start: 20171104
  17. DEXAMETHASONE [Suspect]
     Active Substance: DEXAMETHASONE
     Indication: Product used for unknown indication
     Route: 065
     Dates: start: 20171102, end: 20171106
  18. SERTRALINE [Concomitant]
     Active Substance: SERTRALINE HYDROCHLORIDE
     Dosage: EVERY MORNING
     Route: 065
  19. BENDROFLUMETHIAZIDE [Concomitant]
     Active Substance: BENDROFLUMETHIAZIDE
     Dosage: EVERY MORNING
     Route: 065
  20. RAMIPRIL [Concomitant]
     Active Substance: RAMIPRIL
     Dosage: EVERY MORNING
     Route: 065
  21. OMEPRAZOLE [Concomitant]
     Active Substance: OMEPRAZOLE
     Dosage: EVERY MORNING
     Route: 065
  22. METOCLOPRAMIDE [Concomitant]
     Active Substance: METOCLOPRAMIDE
     Route: 065

REACTIONS (8)
  - Abnormal behaviour [Recovered/Resolved]
  - Confusional state [Not Recovered/Not Resolved]
  - Emotional distress [Not Recovered/Not Resolved]
  - Agitation [Recovered/Resolved]
  - Paranoia [Recovered/Resolved]
  - Hallucination [Recovered/Resolved]
  - Disorientation [Recovered/Resolved]
  - Disturbance in social behaviour [Recovered/Resolved]

NARRATIVE: CASE EVENT DATE: 20171111
